FAERS Safety Report 21173956 (Version 1)
Quarter: 2022Q3

REPORT INFORMATION
  Report Type: Spontaneous
  Country: US (occurrence: US)
  Receive Date: 20220804
  Receipt Date: 20220804
  Transmission Date: 20221026
  Serious: No
  Sender: FDA-Public Use
  Company Number: US-ABBVIE-22K-163-4444349-00

PATIENT
  Age: 43 Year
  Sex: Female
  Weight: 82.174 kg

DRUGS (5)
  1. DEPAKOTE ER [Suspect]
     Active Substance: DIVALPROEX SODIUM
     Indication: Seizure
     Dosage: DURATION WAS 10 YEARS
     Route: 048
     Dates: end: 20220621
  2. DILANTIN [Concomitant]
     Active Substance: PHENYTOIN
     Indication: Seizure
  3. ALPRAZOLAM [Concomitant]
     Active Substance: ALPRAZOLAM
     Indication: Antidepressant therapy
  4. FOLIC ACID [Concomitant]
     Active Substance: FOLIC ACID
     Indication: Supplementation therapy
  5. COVID-19 VACCINE NOS [Concomitant]
     Active Substance: COVID-19 VACCINE NOS
     Indication: COVID-19 immunisation
     Dosage: UNKNOWN MANUFACTURER
     Route: 030

REACTIONS (1)
  - Product dispensing error [Not Recovered/Not Resolved]

NARRATIVE: CASE EVENT DATE: 20220622
